FAERS Safety Report 8834634 (Version 1)
Quarter: 2012Q4

REPORT INFORMATION
  Report Type: 
  Country: NI (occurrence: NI)
  Receive Date: 20121010
  Receipt Date: 20121010
  Transmission Date: 20130627
  Serious: Yes (Death, Other)
  Sender: FDA-Public Use
  Company Number: NI-ROCHE-1140889

PATIENT
  Age: 46 Year
  Sex: Male
  Weight: 58.9 kg

DRUGS (5)
  1. PEGASYS [Suspect]
     Indication: PRODUCT USED FOR UNKNOWN INDICATION
     Route: 058
     Dates: start: 20111203, end: 20120915
  2. COPEGUS [Suspect]
     Indication: PRODUCT USED FOR UNKNOWN INDICATION
     Dosage: 2 tablets in morning and 3 tablets at night
     Route: 048
     Dates: start: 20111203, end: 20120915
  3. PROPRANOLOL HYDROCHLORIDE [Suspect]
     Indication: PRODUCT USED FOR UNKNOWN INDICATION
     Dosage: 1 tablet in the morning
     Route: 048
     Dates: start: 20111203, end: 20120917
  4. SPIRONOLACTONE [Suspect]
     Indication: PRODUCT USED FOR UNKNOWN INDICATION
     Route: 048
     Dates: start: 20120605, end: 20120916
  5. VITAMIN K [Concomitant]
     Dosage: 90 ug /day
     Route: 030
     Dates: start: 20120612, end: 20120908

REACTIONS (5)
  - Incoherent [Fatal]
  - Loss of consciousness [Fatal]
  - Hepatic encephalopathy [Fatal]
  - Shock [Fatal]
  - Ascites [Unknown]
